FAERS Safety Report 20082223 (Version 2)
Quarter: 2021Q4

REPORT INFORMATION
  Report Type: Spontaneous
  Country: TR (occurrence: TR)
  Receive Date: 20211117
  Receipt Date: 20211119
  Transmission Date: 20220303
  Serious: Yes (Death, Other)
  Sender: FDA-Public Use
  Company Number: TR-PFIZER INC-202101540448

PATIENT
  Age: 71 Year
  Sex: Male

DRUGS (5)
  1. PIPERACILLIN SODIUM\TAZOBACTAM SODIUM [Suspect]
     Active Substance: PIPERACILLIN SODIUM\TAZOBACTAM SODIUM
     Dosage: 4.5 G
     Route: 042
     Dates: start: 20201118
  2. CIPROFLOXACIN [Suspect]
     Active Substance: CIPROFLOXACIN
     Dosage: UNK (400)
     Route: 042
     Dates: start: 20201118
  3. DEXAMETHASONE [Suspect]
     Active Substance: DEXAMETHASONE
     Indication: COVID-19
     Dosage: 6 MG
     Route: 042
     Dates: start: 202011
  4. TOCILIZUMAB [Suspect]
     Active Substance: TOCILIZUMAB
     Dosage: UNK
     Dates: start: 20201124
  5. FAVIPIRAVIR [Concomitant]
     Active Substance: FAVIPIRAVIR
     Indication: COVID-19
     Dosage: 600 MG
     Dates: start: 202011

REACTIONS (5)
  - Fungal infection [Fatal]
  - Systemic candida [Fatal]
  - Cardiac arrest [Fatal]
  - Respiratory distress [Unknown]
  - Wound contamination [Unknown]

NARRATIVE: CASE EVENT DATE: 20201203
